FAERS Safety Report 16816583 (Version 1)
Quarter: 2019Q4

REPORT INFORMATION
  Report Type: Spontaneous
  Country: US (occurrence: US)
  Receive Date: 20190917
  Receipt Date: 20190917
  Transmission Date: 20200122
  Serious: Yes (Hospitalization)
  Sender: FDA-Public Use
  Company Number: None

PATIENT
  Sex: Female

DRUGS (1)
  1. MEKINIST [Suspect]
     Active Substance: TRAMETINIB DIMETHYL SULFOXIDE
     Indication: BONE DISORDER
     Route: 048
     Dates: start: 20190521

REACTIONS (6)
  - Peripheral swelling [None]
  - Arthralgia [None]
  - Limb operation [None]
  - Intentional dose omission [None]
  - Rash [None]
  - Pyrexia [None]
